FAERS Safety Report 11216768 (Version 1)
Quarter: 2015Q2

REPORT INFORMATION
  Report Type: Spontaneous
  Country: US (occurrence: US)
  Receive Date: 20150624
  Receipt Date: 20150624
  Transmission Date: 20150821
  Serious: Yes (Other)
  Sender: FDA-Public Use
  Company Number: US-LPDUSPRD-20150452

PATIENT
  Age: 66 Year
  Sex: Female

DRUGS (5)
  1. AMICODIPINE [Concomitant]
     Dosage: DOSE NOT PROVIDED
     Route: 065
  2. CLONIDINE. [Concomitant]
     Active Substance: CLONIDINE
     Dosage: DOSE NOT PROVIDED
     Route: 065
  3. PRAVASTATIN [Concomitant]
     Active Substance: PRAVASTATIN\PRAVASTATIN SODIUM
     Dosage: DOSE NOT PROVIDED
     Route: 065
  4. MELOPROLOL [Concomitant]
     Dosage: DOSE NOT PROVIDED
     Route: 065
  5. HYDRALAZINE HCL INJECTION, USP (0901-25) 20 MG/ML [Suspect]
     Active Substance: HYDRALAZINE HYDROCHLORIDE
     Dosage: DOSE NOT PROVIDED
     Route: 065

REACTIONS (2)
  - Anti-neutrophil cytoplasmic antibody positive vasculitis [Unknown]
  - Glomerulonephritis rapidly progressive [Unknown]
